FAERS Safety Report 9333225 (Version 1)
Quarter: 2013Q2

REPORT INFORMATION
  Report Type: Report from Study
  Country: US (occurrence: US)
  Receive Date: 20130606
  Receipt Date: 20130606
  Transmission Date: 20140414
  Serious: Yes (Hospitalization)
  Sender: FDA-Public Use
  Company Number: US-009507513-1306USA001095

PATIENT
  Age: 4 Year
  Sex: Male
  Weight: 20.7 kg

DRUGS (5)
  1. TEMODAR [Suspect]
     Indication: NEUROBLASTOMA RECURRENT
     Dosage: 80 MG, QD
     Route: 048
     Dates: start: 20130311, end: 20130315
  2. MLN8237 [Suspect]
     Indication: NEUROBLASTOMA RECURRENT
     Dosage: 40 MG, QD
     Route: 048
     Dates: start: 20130311, end: 20130317
  3. IRINOTECAN HYDROCHLORIDE [Suspect]
     Indication: NEUROBLASTOMA RECURRENT
     Dosage: 41 MG, QD
     Route: 042
     Dates: start: 20130311, end: 20130315
  4. NEULASTA [Concomitant]
     Dosage: UNK
     Dates: start: 20130318, end: 20130318
  5. CEFIXIME [Concomitant]
     Dosage: UNK
     Dates: start: 20130307, end: 20130318

REACTIONS (2)
  - Serratia bacteraemia [Recovered/Resolved]
  - Influenza [Not Recovered/Not Resolved]
